FAERS Safety Report 6527889-4 (Version None)
Quarter: 2010Q1

REPORT INFORMATION
  Report Type: 
  Country: None (occurrence: None)
  Receive Date: 20100106
  Receipt Date: 20091230
  Transmission Date: 20100710
  Serious: Yes (Other)
  Sender: FDA-Public Use
  Company Number: IN-B.I. PHARMACEUTICALS,INC./RIDGEFIELD-2009-DE-07918GD

PATIENT

DRUGS (8)
  1. CLONIDINE [Suspect]
     Indication: POSTOPERATIVE ANALGESIA
     Dosage: 150 MG
  2. BUPIVACAINE [Suspect]
     Indication: POSTOPERATIVE ANALGESIA
  3. DIAZEPAM [Concomitant]
     Indication: PREMEDICATION
     Dosage: 5 MG
     Route: 048
  4. FENTANYL-100 [Concomitant]
     Dosage: 1 MG/KG
     Route: 042
  5. PROPOFOL [Concomitant]
     Indication: INDUCTION OF ANAESTHESIA
     Route: 042
  6. VECURONIUM BROMIDE [Concomitant]
     Indication: ENDOTRACHEAL INTUBATION
     Dosage: 0.1 MG/KG
  7. NITROUS OXIDE [Concomitant]
     Indication: MAINTENANCE OF ANAESTHESIA
  8. ISOFLURANE [Concomitant]
     Indication: MAINTENANCE OF ANAESTHESIA

REACTIONS (2)
  - BLOOD PRESSURE SYSTOLIC INCREASED [None]
  - HEART RATE INCREASED [None]
